FAERS Safety Report 6918300-X (Version None)
Quarter: 2010Q3

REPORT INFORMATION
  Report Type: 
  Country: None (occurrence: None)
  Receive Date: 20100811
  Receipt Date: 20100803
  Transmission Date: 20110219
  Serious: Yes (Other)
  Sender: FDA-Public Use
  Company Number: US-BIOGENIDEC-2010BI026862

PATIENT
  Age: 59 Year
  Sex: Female

DRUGS (3)
  1. TYSABRI [Suspect]
     Indication: MULTIPLE SCLEROSIS
     Route: 042
     Dates: start: 20070109, end: 20081015
  2. TYSABRI [Suspect]
     Route: 042
     Dates: start: 20090929, end: 20091028
  3. TYSABRI [Suspect]
     Route: 042
     Dates: start: 20100118, end: 20100419

REACTIONS (1)
  - LIP AND/OR ORAL CAVITY CANCER [None]
